FAERS Safety Report 24201202 (Version 5)
Quarter: 2025Q1

REPORT INFORMATION
  Report Type: Other
  Country: US (occurrence: US)
  Receive Date: 20240812
  Receipt Date: 20250218
  Transmission Date: 20250409
  Serious: No
  Sender: TRAVERE THERAPEUTICS
  Company Number: US-TRAVERE-2024TVT00698

PATIENT
  Age: 50 Year
  Sex: Female

DRUGS (7)
  1. FILSPARI [Suspect]
     Active Substance: SPARSENTAN
     Indication: IgA nephropathy
     Route: 048
     Dates: start: 20240614
  2. FILSPARI [Suspect]
     Active Substance: SPARSENTAN
     Route: 048
     Dates: start: 20240628
  3. FILSPARI [Suspect]
     Active Substance: SPARSENTAN
     Route: 048
  4. FILSPARI [Suspect]
     Active Substance: SPARSENTAN
     Route: 048
  5. ALLOPURINOL [Concomitant]
     Active Substance: ALLOPURINOL
  6. HYDROCHLOROTHIAZIDE [Concomitant]
     Active Substance: HYDROCHLOROTHIAZIDE
  7. VITAMIN D [Concomitant]
     Active Substance: VITAMIN D NOS

REACTIONS (4)
  - Dizziness postural [Unknown]
  - Liver function test increased [Recovering/Resolving]
  - Wrong technique in product usage process [Unknown]
  - Contusion [Unknown]

NARRATIVE: CASE EVENT DATE: 20250101
